FAERS Safety Report 8203364-6 (Version None)
Quarter: 2012Q1

REPORT INFORMATION
  Report Type: 
  Country: None (occurrence: None)
  Receive Date: 20120312
  Receipt Date: 20120301
  Transmission Date: 20120608
  Serious: Yes (Other)
  Sender: FDA-Public Use
  Company Number: US-ASTRAZENECA-2012SE04946

PATIENT
  Age: 67 Year
  Sex: Female
  Weight: 90.7 kg

DRUGS (1)
  1. CRESTOR [Suspect]
     Route: 048

REACTIONS (8)
  - ARTERIAL OCCLUSIVE DISEASE [None]
  - GASTROOESOPHAGEAL REFLUX DISEASE [None]
  - BACK PAIN [None]
  - DRUG DOSE OMISSION [None]
  - LABORATORY TEST ABNORMAL [None]
  - CORONARY ARTERY DISEASE [None]
  - HYPERTENSION [None]
  - ADVERSE EVENT [None]
